FAERS Safety Report 8783695 (Version 2)
Quarter: 2013Q4

REPORT INFORMATION
  Report Type: Report from Study
  Country: CA (occurrence: CA)
  Receive Date: 20120914
  Receipt Date: 20131105
  Transmission Date: 20140711
  Serious: Yes (Death, Life-Threatening)
  Sender: FDA-Public Use
  Company Number: CA-009507513-1209CAN003680

PATIENT
  Age: 67 Year
  Sex: Female

DRUGS (10)
  1. TEMOZOLOMIDE [Suspect]
     Indication: GLIOBLASTOMA
     Dosage: 120 MG, QD
     Route: 048
     Dates: start: 20120523, end: 20120615
  2. RITUXIMAB [Suspect]
     Indication: GLIOBLASTOMA
     Dosage: 40.05 MICROGRAM, 5 FR/WEEK
     Dates: start: 20120523, end: 20120615
  3. BUSCOPAN [Concomitant]
     Indication: PAIN
     Dosage: UNK
     Dates: start: 20120703, end: 20120705
  4. LITICAN [Concomitant]
     Indication: NAUSEA
     Dosage: UNK
     Dates: start: 20120703, end: 20120705
  5. PANTOMED (DEXPANTHENOL) [Concomitant]
     Indication: PROPHYLAXIS
     Dosage: UNK
     Dates: end: 20120714
  6. CALCIUM (UNSPECIFIED) [Concomitant]
     Indication: HYPOCALCAEMIA
     Dosage: UNK
     Dates: start: 20120522, end: 20120714
  7. DAFLON (DIOSMIN (+) HESPERIDIN) [Concomitant]
     Indication: PROPHYLAXIS
     Dosage: UNK
     Dates: start: 20120601, end: 20120713
  8. MEDROL [Concomitant]
     Indication: BRAIN OEDEMA
     Dosage: UNK
     Dates: start: 201205, end: 20120717
  9. IBUPROFEN [Concomitant]
     Indication: PAIN
     Dosage: UNK
     Dates: start: 20120703, end: 20120709
  10. KEPPRA [Concomitant]
     Indication: EPILEPSY
     Dosage: UNK
     Dates: start: 201205, end: 20120720

REACTIONS (2)
  - Urosepsis [Recovered/Resolved]
  - Glioblastoma [Fatal]
